FAERS Safety Report 5945841-4 (Version None)
Quarter: 2008Q4

REPORT INFORMATION
  Report Type: 
  Country: None (occurrence: None)
  Receive Date: 20081110
  Receipt Date: 20081029
  Transmission Date: 20090506
  Serious: Yes (Hospitalization, Other)
  Sender: FDA-Public Use
  Company Number: US-BAYER-200716620NA

PATIENT
  Age: 63 Year
  Sex: Female

DRUGS (1)
  1. BETASERON [Suspect]
     Indication: MULTIPLE SCLEROSIS
     Dosage: TOTAL DAILY DOSE: 8 MIU
     Route: 058
     Dates: start: 20070313

REACTIONS (6)
  - ARTHRALGIA [None]
  - ATRIAL FIBRILLATION [None]
  - DIVERTICULITIS [None]
  - FALL [None]
  - PAIN IN EXTREMITY [None]
  - SOFT TISSUE INJURY [None]
